FAERS Safety Report 6844062-0 (Version None)
Quarter: 2010Q3

REPORT INFORMATION
  Report Type: 
  Country: None (occurrence: None)
  Receive Date: 20100714
  Receipt Date: 20100714
  Transmission Date: 20110219
  Serious: No
  Sender: FDA-Public Use
  Company Number: None

PATIENT
  Sex: Male

DRUGS (2)
  1. CLOMIPHENE CITRATE [Suspect]
     Indication: ANDROPAUSE
     Dosage: 1/4 TAB QD PO
     Route: 048
  2. TENAGA [Suspect]
     Indication: LOSS OF LIBIDO
     Dosage: PO
     Route: 048

REACTIONS (6)
  - ERECTILE DYSFUNCTION [None]
  - HYPOTRICHOSIS [None]
  - LOSS OF LIBIDO [None]
  - PARAESTHESIA [None]
  - SCROTAL DISORDER [None]
  - TESTICULAR ATROPHY [None]
